FAERS Safety Report 23517899 (Version 1)
Quarter: 2024Q1

REPORT INFORMATION
  Report Type: Spontaneous
  Country: US (occurrence: None)
  Receive Date: 20240212
  Receipt Date: 20240212
  Transmission Date: 20240410
  Serious: Yes (Hospitalization)
  Sender: FDA-Public Use
  Company Number: None

PATIENT
  Sex: Male

DRUGS (12)
  1. ZENPEP [Suspect]
     Active Substance: PANCRELIPASE AMYLASE\PANCRELIPASE LIPASE\PANCRELIPASE PROTEASE
     Indication: Cystic fibrosis
     Dosage: OTHER QUANTITY : 25000-79000 UNIT;?TAKE 5 CAPSULES BY MOUTH THREE TIMES DAILY (WITH MEALS) AND TAKE
     Route: 048
     Dates: start: 20220419
  2. ALBUTEROL 0.83% INH SOL 3=1 [Concomitant]
  3. AZITHROMYCIN TAB [Concomitant]
  4. COLISTIMETHATE [Concomitant]
  5. COMPLETE FORM D500 SOFTGEL [Concomitant]
  6. ESOMEPRAZOLE GRA 20MG DR [Concomitant]
  7. PROAIR HFA AER [Concomitant]
  8. PULMOZYME SOL 1MG/ML [Concomitant]
  9. SOD CHL 0.9%5ML [Concomitant]
  10. VENTOLIN HFA INHALER [Concomitant]
  11. VITAMIN D3 CAP 5000UNIT [Concomitant]
  12. VITAMIN D3 5000 U [Concomitant]

REACTIONS (1)
  - Hospitalisation [None]
